FAERS Safety Report 20544331 (Version 1)
Quarter: 2022Q1

REPORT INFORMATION
  Report Type: Spontaneous
  Country: PL (occurrence: PL)
  Receive Date: 20220303
  Receipt Date: 20220303
  Transmission Date: 20220423
  Serious: Yes (Death, Hospitalization)
  Sender: FDA-Public Use
  Company Number: PL-LUOXINA-LUOX-PHC-2022-MAR-02-LIT-0006

PATIENT
  Age: 52 Year
  Sex: Male

DRUGS (1)
  1. TOBRAMYCIN [Suspect]
     Active Substance: TOBRAMYCIN
     Indication: Klebsiella infection
     Route: 065

REACTIONS (2)
  - Drug ineffective [Unknown]
  - Klebsiella infection [Fatal]
